FAERS Safety Report 23139742 (Version 1)
Quarter: 2023Q4

REPORT INFORMATION
  Report Type: Spontaneous
  Country: US (occurrence: US)
  Receive Date: 20231102
  Receipt Date: 20231102
  Transmission Date: 20240109
  Serious: Yes (Hospitalization)
  Sender: FDA-Public Use
  Company Number: US-SCA PHARMACEUTICALS-2023SCA00003

PATIENT
  Age: 19 Year
  Sex: Female
  Weight: 92.971 kg

DRUGS (3)
  1. FENTANYL\ROPIVACAINE [Suspect]
     Active Substance: FENTANYL\ROPIVACAINE
     Indication: Delivery
     Dosage: 12 ML/HR CONTINUOUS THROUGH EPIDURAL CATHETER INTO LUMBAR 2-5 AREA
     Route: 008
     Dates: start: 20230710, end: 20230710
  2. FENTANYL\ROPIVACAINE [Suspect]
     Active Substance: FENTANYL\ROPIVACAINE
     Dosage: 10 ML/HR CONTINUOUS THROUGH EPIDURAL CATHETER INTO LUMBAR 2-5 AREA
     Route: 008
     Dates: start: 20230710, end: 20230710
  3. FENTANYL\ROPIVACAINE [Suspect]
     Active Substance: FENTANYL\ROPIVACAINE
     Dosage: 8 ML/HR CONTINUOUS THROUGH EPIDURAL CATHETER INTO LUMBAR 2-5 AREA
     Route: 008
     Dates: start: 20230710, end: 20230710

REACTIONS (2)
  - Loss of consciousness [Recovered/Resolved]
  - Hypotension [Unknown]

NARRATIVE: CASE EVENT DATE: 20230710
